FAERS Safety Report 9246837 (Version 2)
Quarter: 2013Q2

REPORT INFORMATION
  Report Type: Spontaneous
  Country: JP (occurrence: JP)
  Receive Date: 20130422
  Receipt Date: 20130531
  Transmission Date: 20140414
  Serious: Yes (Hospitalization)
  Sender: FDA-Public Use
  Company Number: JP-ABBOTT-13P-087-1077252-00

PATIENT
  Age: 85 Year
  Sex: Male

DRUGS (4)
  1. LUPRON DEPOT [Suspect]
     Indication: PROSTATE CANCER
     Route: 058
     Dates: start: 20121225
  2. CASODEX [Concomitant]
     Indication: PROSTATE CANCER
     Route: 048
     Dates: start: 20121225
  3. BAYASPIRIN [Concomitant]
     Indication: CEREBRAL INFARCTION
     Route: 048
  4. ALLEGRA [Concomitant]
     Indication: EPSTEIN-BARR VIRUS INFECTION
     Route: 048
     Dates: start: 20110519

REACTIONS (2)
  - Pneumonia [Recovering/Resolving]
  - Folliculitis [Recovering/Resolving]
